FAERS Safety Report 21255450 (Version 1)
Quarter: 2022Q3

REPORT INFORMATION
  Report Type: Spontaneous
  Country: CN (occurrence: CN)
  Receive Date: 20220825
  Receipt Date: 20220825
  Transmission Date: 20221027
  Serious: Yes (Other)
  Sender: FDA-Public Use
  Company Number: CN-FreseniusKabi-FK202211566

PATIENT
  Age: 78 Year
  Sex: Male
  Weight: 50.00 kg

DRUGS (3)
  1. EGG PHOSPHOLIPIDS\GLYCERIN\MEDIUM-CHAIN TRIGLYCERIDES\SOYBEAN OIL [Suspect]
     Active Substance: EGG PHOSPHOLIPIDS\GLYCERIN\MEDIUM-CHAIN TRIGLYCERIDES\SOYBEAN OIL
     Indication: Nutritional supplementation
     Route: 041
     Dates: start: 20220725, end: 20220725
  2. HERBALS [Concomitant]
     Active Substance: HERBALS
     Indication: Aplastic anaemia
     Route: 041
     Dates: start: 20220725, end: 20220803
  3. HERBALS [Concomitant]
     Active Substance: HERBALS
     Indication: Myelodysplastic syndrome

REACTIONS (4)
  - Pyrexia [Recovered/Resolved]
  - Chills [Recovered/Resolved]
  - Temperature intolerance [Recovered/Resolved]
  - Tremor [Recovered/Resolved]

NARRATIVE: CASE EVENT DATE: 20220725
